FAERS Safety Report 7982662-5 (Version None)
Quarter: 2011Q4

REPORT INFORMATION
  Report Type: 
  Country: None (occurrence: None)
  Receive Date: 20111215
  Receipt Date: 20111209
  Transmission Date: 20120403
  Serious: Yes (Other)
  Sender: FDA-Public Use
  Company Number: FR-SANOFI-AVENTIS-2011SA076332

PATIENT
  Age: 57 Year
  Sex: Male
  Weight: 71 kg

DRUGS (16)
  1. FLUDARA [Suspect]
     Route: 065
     Dates: start: 20111011, end: 20111011
  2. ANTI-THYMOCYTE GLOBULIN NOS [Suspect]
     Route: 065
     Dates: start: 20111011, end: 20111011
  3. PANTOPRAZOLE [Concomitant]
     Dates: start: 20111007, end: 20111007
  4. SOLU-MEDROL [Concomitant]
     Dates: start: 20111010, end: 20111013
  5. PROTON PUMP INHIBITORS [Concomitant]
     Dates: start: 20111012
  6. ANTI-THYMOCYTE GLOBULIN NOS [Suspect]
     Indication: MULTIPLE MYELOMA
     Route: 065
  7. VALIUM [Concomitant]
     Dates: start: 20111008, end: 20111010
  8. BUSULFAN [Concomitant]
     Dates: start: 20111008, end: 20111009
  9. MULTI-VITAMINS [Concomitant]
     Dates: start: 20111006, end: 20111006
  10. DELURSAN [Concomitant]
     Dates: start: 20111007, end: 20111007
  11. ZOFRAN [Concomitant]
     Dates: start: 20111007, end: 20111012
  12. ALL OTHER THERAPEUTIC PRODUCTS [Concomitant]
     Dates: start: 20111006, end: 20111006
  13. MAGNESIUM SULFATE [Concomitant]
     Dates: start: 20111006, end: 20111006
  14. ALLOPURINOL [Concomitant]
     Dates: start: 20111007, end: 20111007
  15. FLUDARA [Suspect]
     Indication: MULTIPLE MYELOMA
     Route: 065
     Dates: start: 20111007, end: 20111009
  16. POLARAMINE [Concomitant]
     Dates: start: 20111010, end: 20111012

REACTIONS (1)
  - CYTOLYTIC HEPATITIS [None]
